FAERS Safety Report 4684241-4 (Version None)
Quarter: 2005Q2

REPORT INFORMATION
  Report Type: 
  Country: None (occurrence: None)
  Receive Date: 20050531
  Receipt Date: 20050404
  Transmission Date: 20051028
  Serious: Yes (Hospitalization)
  Sender: FDA-Public Use
  Company Number: US_0411107753

PATIENT
  Age: 39 Year
  Sex: Female
  Weight: 43.9989 kg

DRUGS (4)
  1. ZYPREXA [Suspect]
     Dosage: 15 MG DAY
     Dates: start: 19970101, end: 20030101
  2. WELLBUTRIN 9BUPROPION HYDROCHLORIDE) [Concomitant]
  3. REMERON (MIRTAZAPINE ORIFARM) [Concomitant]
  4. ABILIFY [Concomitant]

REACTIONS (2)
  - DIABETES MELLITUS [None]
  - DIABETIC KETOACIDOSIS [None]
